FAERS Safety Report 5528212-4 (Version None)
Quarter: 2007Q4

REPORT INFORMATION
  Report Type: 
  Country: None (occurrence: None)
  Receive Date: 20071128
  Receipt Date: 20071119
  Transmission Date: 20080405
  Serious: Yes (Hospitalization)
  Sender: FDA-Public Use
  Company Number: US-WYE-H01355607

PATIENT
  Age: 21 Year
  Sex: Male

DRUGS (1)
  1. EFFEXOR [Suspect]
     Dosage: OVERDOSE AMOUNT ^APPROXIMATELY 40 TABLETS^

REACTIONS (9)
  - AGGRESSION [None]
  - CONVULSION [None]
  - DRUG SCREEN FALSE POSITIVE [None]
  - DRUG TOXICITY [None]
  - INTENTIONAL OVERDOSE [None]
  - RHABDOMYOLYSIS [None]
  - SOMNOLENCE [None]
  - SPEECH DISORDER [None]
  - TACHYCARDIA [None]
